FAERS Safety Report 10911729 (Version 1)
Quarter: 2015Q1

REPORT INFORMATION
  Report Type: Spontaneous
  Country: US (occurrence: None)
  Receive Date: 20150309
  Receipt Date: 20150309
  Transmission Date: 20150721
  Serious: Yes (Hospitalization)
  Sender: FDA-Public Use
  Company Number: None

PATIENT
  Age: 66 Year
  Sex: Male
  Weight: 77.3 kg

DRUGS (15)
  1. SOFOSBUVIR [Suspect]
     Active Substance: SOFOSBUVIR
     Indication: HEPATITIS C
     Route: 048
     Dates: start: 20140423, end: 20141001
  2. LEVOTHYROXINE [Concomitant]
     Active Substance: LEVOTHYROXINE
  3. VITAMIN A [Concomitant]
     Active Substance: VITAMIN A
  4. FUROSEMIDE. [Concomitant]
     Active Substance: FUROSEMIDE
  5. URSODIOL. [Concomitant]
     Active Substance: URSODIOL
  6. ZINC SULFATE [Concomitant]
     Active Substance: ZINC SULFATE\ZINC SULFATE ANHYDROUS
  7. ERGOCALCIFEROL. [Concomitant]
     Active Substance: ERGOCALCIFEROL
  8. HYDROCHLOROTHIAZIDE. [Concomitant]
     Active Substance: HYDROCHLOROTHIAZIDE
  9. SPIRONOLACTONE. [Concomitant]
     Active Substance: SPIRONOLACTONE
  10. GLUCOSAMINE [Concomitant]
     Active Substance: GLUCOSAMINE
  11. HYDROMORPHONE [Concomitant]
     Active Substance: HYDROMORPHONE
  12. TAMSULOSIN [Concomitant]
     Active Substance: TAMSULOSIN
  13. BUPROPRION [Concomitant]
     Active Substance: BUPROPION
  14. RIBAVIRIN. [Suspect]
     Active Substance: RIBAVIRIN
     Indication: HEPATITIS C
     Route: 048
     Dates: start: 20140423, end: 20141015
  15. ATENOLOL. [Concomitant]
     Active Substance: ATENOLOL

REACTIONS (7)
  - Blood pressure systolic decreased [None]
  - Dizziness [None]
  - Nausea [None]
  - Feeling hot [None]
  - Syncope [None]
  - Skin discolouration [None]
  - Blood glucose increased [None]

NARRATIVE: CASE EVENT DATE: 20140519
